FAERS Safety Report 22095371 (Version 2)
Quarter: 2023Q1

REPORT INFORMATION
  Report Type: Spontaneous
  Country: US (occurrence: US)
  Receive Date: 20230314
  Receipt Date: 20230320
  Transmission Date: 20230418
  Serious: No
  Sender: FDA-Public Use
  Company Number: US-PFIZER INC-202300108160

PATIENT
  Age: 63 Year
  Sex: Female

DRUGS (1)
  1. XELJANZ XR [Suspect]
     Active Substance: TOFACITINIB CITRATE
     Indication: Rheumatoid arthritis
     Dosage: 11 MG, DAILY
     Route: 048

REACTIONS (2)
  - Condition aggravated [Not Recovered/Not Resolved]
  - Sensitivity to weather change [Not Recovered/Not Resolved]
